FAERS Safety Report 4753856-7 (Version None)
Quarter: 2005Q3

REPORT INFORMATION
  Report Type: 
  Country: None (occurrence: None)
  Receive Date: 20050825
  Receipt Date: 20050810
  Transmission Date: 20060218
  Serious: Yes (Hospitalization)
  Sender: FDA-Public Use
  Company Number: VIS10206.2005

PATIENT
  Age: 45 Year
  Sex: Male

DRUGS (4)
  1. VISICOL [Suspect]
     Indication: PREOPERATIVE CARE
     Dates: start: 20050724, end: 20050724
  2. DULCOLAX [Concomitant]
  3. NEOMYCIN [Concomitant]
  4. FLAGYL [Concomitant]

REACTIONS (5)
  - ABDOMINAL PAIN [None]
  - CHILLS [None]
  - FEELING HOT [None]
  - INFECTION [None]
  - VOMITING [None]
